FAERS Safety Report 17718680 (Version 2)
Quarter: 2020Q2

REPORT INFORMATION
  Report Type: Spontaneous
  Country: DE (occurrence: DE)
  Receive Date: 20200428
  Receipt Date: 20200504
  Transmission Date: 20200714
  Serious: Yes (Hospitalization)
  Sender: FDA-Public Use
  Company Number: DE-PFIZER INC-2020169010

PATIENT
  Age: 85 Year
  Sex: Male

DRUGS (15)
  1. TORASEMIDE [Suspect]
     Active Substance: TORSEMIDE
     Dosage: 40 MG, 1X/DAY (1-1-0-0)
  2. APIDRA [Suspect]
     Active Substance: INSULIN GLULISINE
     Dosage: UNK (AS PER SCHEMA)
     Route: 058
  3. PANTOPRAZOLE [Concomitant]
     Active Substance: PANTOPRAZOLE
     Dosage: 40 MG, 1X/DAY (1-0-0-0)
  4. RAMIPRIL. [Suspect]
     Active Substance: RAMIPRIL
     Dosage: 2.5 MG, 1X/DAY (1-0-0-0)
  5. MARCUMAR [Concomitant]
     Active Substance: PHENPROCOUMON
     Dosage: UNK (ACCORDING TO INR)
  6. ZOPICLON [Concomitant]
     Active Substance: ZOPICLONE
     Dosage: 7.5 MG, AS NEEDED
  7. FORMATRIS [Concomitant]
     Active Substance: FORMOTEROL FUMARATE
     Dosage: UNK UNK, AS NEEDED
  8. TOUJEO [Suspect]
     Active Substance: INSULIN GLARGINE
     Dosage: 46 IU, 1X/DAY (0-0-46-0)
  9. ULTIBRO BREEZHALER [Concomitant]
     Active Substance: GLYCOPYRRONIUM\INDACATEROL
     Dosage: 1 DF, 1X/DAY (1-0-0-0)
     Route: 055
  10. MELPERON [Concomitant]
     Active Substance: MELPERONE
     Dosage: 75 MG, 1X/DAY (1-0-0-2)
  11. SALBUTAMOL [Concomitant]
     Active Substance: ALBUTEROL
     Dosage: UNK, AS NEEDED (PRN)
  12. BUFORI EASYHALER [Concomitant]
     Active Substance: BUDESONIDE\FORMOTEROL FUMARATE
     Dosage: 2 DF, 2X/DAY (2-0-2-0)
     Route: 055
  13. PREDNISOLON [PREDNISOLONE] [Concomitant]
     Active Substance: PREDNISOLONE
     Dosage: 20 MG, 1X/DAY (1-0-0-0)
  14. DAXAS [Concomitant]
     Active Substance: ROFLUMILAST
     Dosage: 500 UG, 1X/DAY (1-0-0-0)
  15. CAPROS [Concomitant]
     Dosage: 10 MG, 1X/DAY (1-0-0-0)

REACTIONS (10)
  - Oedema peripheral [Unknown]
  - Tachycardia [Unknown]
  - Hypotension [Unknown]
  - Hypoglycaemia [Unknown]
  - Somnolence [Unknown]
  - Localised infection [Unknown]
  - Pain [Unknown]
  - General physical health deterioration [Unknown]
  - Chest pain [Unknown]
  - Cold sweat [Unknown]
